FAERS Safety Report 16444020 (Version 1)
Quarter: 2019Q2

REPORT INFORMATION
  Report Type: Report from Study
  Country: IT (occurrence: IT)
  Receive Date: 20190618
  Receipt Date: 20190618
  Transmission Date: 20190711
  Serious: Yes (Hospitalization)
  Sender: FDA-Public Use
  Company Number: IT-TEVA-2019-IT-1063956

PATIENT
  Age: 29 Year
  Sex: Male
  Weight: 48 kg

DRUGS (3)
  1. ETOPOSIDE TEVA 20 MG/ML, CONCENTRATO PER SOLUZIONE PER INFUSIONE [Suspect]
     Active Substance: ETOPOSIDE
     Indication: SEMINOMA
     Route: 041
     Dates: start: 20190412, end: 20190416
  2. BLEOPRIM [Suspect]
     Active Substance: BLEOMYCIN SULFATE
     Indication: SEMINOMA
     Route: 041
     Dates: start: 20190413, end: 20190419
  3. CISPLATINO ACCORD HEALTHCARE ITALIA 1 MG/ML CONCENTRATO PER SOLUZIONE [Suspect]
     Active Substance: CISPLATIN
     Indication: SEMINOMA
     Route: 041
     Dates: start: 20190412, end: 20190516

REACTIONS (2)
  - Pancytopenia [Recovering/Resolving]
  - Febrile neutropenia [Recovering/Resolving]

NARRATIVE: CASE EVENT DATE: 20190422
